FAERS Safety Report 11216308 (Version 1)
Quarter: 2015Q2

REPORT INFORMATION
  Report Type: Spontaneous
  Country: US (occurrence: None)
  Receive Date: 20150623
  Receipt Date: 20150623
  Transmission Date: 20150821
  Serious: No
  Sender: FDA-Public Use
  Company Number: None

PATIENT
  Age: 57 Year
  Sex: Female

DRUGS (1)
  1. ENBREL [Suspect]
     Active Substance: ETANERCEPT
     Indication: PSORIASIS
     Route: 058

REACTIONS (5)
  - Pruritus [None]
  - Disease recurrence [None]
  - Drug ineffective [None]
  - Insomnia [None]
  - Psoriasis [None]

NARRATIVE: CASE EVENT DATE: 20150420
